FAERS Safety Report 21467040 (Version 1)
Quarter: 2022Q4

REPORT INFORMATION
  Report Type: Report from Study
  Country: US (occurrence: US)
  Receive Date: 20221017
  Receipt Date: 20221017
  Transmission Date: 20230112
  Serious: Yes (Life-Threatening, Hospitalization, Other)
  Sender: FDA-Public Use
  Company Number: US-KARYOPHARM-2022KPT001197

PATIENT
  Age: 4 Year
  Sex: Female
  Weight: 22.4 kg

DRUGS (1)
  1. SELINEXOR [Suspect]
     Active Substance: SELINEXOR
     Indication: Brain stem glioma
     Dosage: 35 MG/M2, WEEKLY
     Route: 048
     Dates: start: 20220630, end: 20220928

REACTIONS (2)
  - Tumour haemorrhage [Not Recovered/Not Resolved]
  - Hypertension [Not Recovered/Not Resolved]

NARRATIVE: CASE EVENT DATE: 20220929
